FAERS Safety Report 7127593-8 (Version None)
Quarter: 2010Q4

REPORT INFORMATION
  Report Type: 
  Country: None (occurrence: None)
  Receive Date: 20101129
  Receipt Date: 20101118
  Transmission Date: 20110411
  Serious: Yes (Death, Hospitalization)
  Sender: FDA-Public Use
  Company Number: CH-BRISTOL-MYERS SQUIBB COMPANY-15400542

PATIENT
  Age: 74 Year
  Sex: Male
  Weight: 66 kg

DRUGS (3)
  1. CEFEPIME [Suspect]
     Indication: FEBRILE NEUTROPENIA
     Dosage: DRUG INTERRUPTED FOR 16 HOURS AND RESTARTED AT REDUCED DOSE
     Route: 042
  2. AMPHOTERICIN B [Suspect]
  3. CYTARABINE [Suspect]
     Indication: ACUTE MYELOID LEUKAEMIA

REACTIONS (3)
  - DRUG LEVEL ABOVE THERAPEUTIC [None]
  - ENCEPHALOPATHY [None]
  - MYOCLONUS [None]
